FAERS Safety Report 24204679 (Version 1)
Quarter: 2024Q3

REPORT INFORMATION
  Report Type: Report from Study
  Country: US (occurrence: US)
  Receive Date: 20240813
  Receipt Date: 20240813
  Transmission Date: 20241016
  Serious: Yes (Hospitalization)
  Sender: ABBVIE
  Company Number: US-ABBVIE-5874302

PATIENT
  Sex: Male

DRUGS (1)
  1. RINVOQ [Suspect]
     Active Substance: UPADACITINIB
     Indication: Product used for unknown indication
     Route: 048
     Dates: start: 20240326

REACTIONS (3)
  - Gastric haemorrhage [Recovered/Resolved]
  - Heart rate increased [Recovered/Resolved]
  - Haemoglobin decreased [Recovered/Resolved]

NARRATIVE: CASE EVENT DATE: 20240101
